FAERS Safety Report 11695790 (Version 1)
Quarter: 2015Q4

REPORT INFORMATION
  Report Type: Spontaneous
  Country: US (occurrence: None)
  Receive Date: 20151103
  Receipt Date: 20151103
  Transmission Date: 20160304
  Serious: Yes (Disabling)
  Sender: FDA-Public Use
  Company Number: None

PATIENT
  Age: 25 Year
  Sex: Male
  Weight: 90.72 kg

DRUGS (4)
  1. EQUATE SLEEPING PILLS [Concomitant]
  2. OMEPRAZOLE. [Concomitant]
     Active Substance: OMEPRAZOLE
  3. TUMS [Concomitant]
     Active Substance: CALCIUM CARBONATE
  4. CIPROFLOXACIN ORAL 500 MG [Suspect]
     Active Substance: CIPROFLOXACIN
     Indication: EPIDIDYMITIS
     Dosage: 1 PILL
     Route: 048
     Dates: start: 20150319, end: 20150328

REACTIONS (8)
  - Fatigue [None]
  - Muscular weakness [None]
  - Chest pain [None]
  - Gastrooesophageal reflux disease [None]
  - Tongue dry [None]
  - Abdominal distension [None]
  - Tendon disorder [None]
  - Arthropathy [None]

NARRATIVE: CASE EVENT DATE: 20150318
